FAERS Safety Report 8235002-0 (Version None)
Quarter: 2012Q1

REPORT INFORMATION
  Report Type: 
  Country: None (occurrence: None)
  Receive Date: 20120326
  Receipt Date: 20120319
  Transmission Date: 20120608
  Serious: Yes (Other)
  Sender: FDA-Public Use
  Company Number: US-BAYER-2012-027032

PATIENT
  Sex: Female
  Weight: 18.141 kg

DRUGS (1)
  1. MIRENA [Suspect]
     Indication: CONTRACEPTION
     Dosage: UNK

REACTIONS (5)
  - WEIGHT INCREASED [None]
  - DEVICE DISLOCATION [None]
  - GALACTORRHOEA [None]
  - INFLAMMATION [None]
  - PAIN [None]
